FAERS Safety Report 5634386-7 (Version None)
Quarter: 2008Q1

REPORT INFORMATION
  Report Type: 
  Country: None (occurrence: None)
  Receive Date: 20080222
  Receipt Date: 20080215
  Transmission Date: 20080703
  Serious: Yes (Hospitalization)
  Sender: FDA-Public Use
  Company Number: US-JNJFOC-20080203898

PATIENT
  Age: 35 Year
  Sex: Female
  Weight: 63.5 kg

DRUGS (2)
  1. ORTHO EVRA [Suspect]
     Indication: CONTRACEPTION
     Route: 062
     Dates: start: 20010101, end: 20050101
  2. MULTI-VITAMIN [Concomitant]
     Indication: MEDICAL DIET
     Route: 048

REACTIONS (1)
  - FIBROADENOMA OF BREAST [None]
